FAERS Safety Report 6408337-1 (Version None)
Quarter: 2009Q4

REPORT INFORMATION
  Report Type: 
  Country: None (occurrence: None)
  Receive Date: 20091021
  Receipt Date: 20091007
  Transmission Date: 20100525
  Serious: Yes (Death)
  Sender: FDA-Public Use
  Company Number: PHHY2009JP43546

PATIENT
  Sex: Female
  Weight: 39 kg

DRUGS (10)
  1. ICL670A ICL+DISTAB [Suspect]
     Indication: MYELODYSPLASTIC SYNDROME
     Dosage: 750 MG/ DAY
     Route: 048
     Dates: start: 20090225, end: 20090924
  2. ICL670A ICL+DISTAB [Suspect]
     Indication: IRON OVERLOAD
  3. BAKTAR [Concomitant]
     Indication: PYREXIA
     Dosage: 1 G, UNK
     Route: 048
     Dates: start: 20070717, end: 20090924
  4. AMLODIPINE [Concomitant]
     Indication: HYPERTENSION
     Dosage: 5 G, UNK
     Route: 048
     Dates: start: 20070717, end: 20090924
  5. FRANDOL [Concomitant]
     Indication: ANGINA PECTORIS
     Dosage: 40 MG, UNK
     Route: 062
     Dates: start: 20070717, end: 20090924
  6. ITRIZOLE [Concomitant]
     Dosage: 100 MG, UNK
     Route: 048
     Dates: start: 20090116, end: 20090924
  7. URSO 250 [Concomitant]
     Indication: CHOLELITHIASIS
     Dosage: 600 MG, UNK
     Route: 048
     Dates: start: 20090208, end: 20090924
  8. PREDONINE [Concomitant]
     Dosage: 10 MG, UNK
     Route: 048
     Dates: start: 20090218, end: 20090318
  9. MAGMITT [Concomitant]
     Indication: CONSTIPATION
     Dosage: 1500 MG, UNK
     Route: 048
     Dates: start: 20090324, end: 20090924
  10. MEIACT [Concomitant]
     Indication: PYREXIA
     Dosage: 300 MG, UNK
     Route: 048
     Dates: start: 20090401, end: 20090405

REACTIONS (11)
  - ALANINE AMINOTRANSFERASE INCREASED [None]
  - ASPARTATE AMINOTRANSFERASE INCREASED [None]
  - BLOOD CREATININE INCREASED [None]
  - CYSTITIS [None]
  - HAEMATOCRIT DECREASED [None]
  - HAEMOGLOBIN DECREASED [None]
  - PNEUMONIA [None]
  - PROTEINURIA [None]
  - RED BLOOD CELL COUNT DECREASED [None]
  - SERUM FERRITIN INCREASED [None]
  - WHITE BLOOD CELL COUNT DECREASED [None]
